FAERS Safety Report 19861519 (Version 2)
Quarter: 2021Q4

REPORT INFORMATION
  Report Type: Report from Study
  Country: NL (occurrence: NL)
  Receive Date: 20210921
  Receipt Date: 20211110
  Transmission Date: 20220303
  Serious: Yes (Other)
  Sender: FDA-Public Use
  Company Number: NL-NOVARTISPH-NVSC2021NL211449

PATIENT
  Sex: Female
  Weight: 52 kg

DRUGS (7)
  1. ACLASTA [Suspect]
     Active Substance: ZOLEDRONIC ACID
     Indication: Osteoporosis
     Dosage: UNK
     Route: 065
     Dates: start: 2013
  2. ACLASTA [Suspect]
     Active Substance: ZOLEDRONIC ACID
     Dosage: UNK
     Route: 065
  3. ACLASTA [Suspect]
     Active Substance: ZOLEDRONIC ACID
     Dosage: 5 MG, Q12MO (0.05 MG/ML INFUSION LIQUID; 5 MG)
     Route: 042
     Dates: end: 202109
  4. TAFLUPROST [Concomitant]
     Active Substance: TAFLUPROST
     Indication: Product used for unknown indication
     Dosage: 1 DF, QD (15 MCG/ML )
     Route: 047
  5. DORZOLAMIDE/TIMOLOL MYLAN [Concomitant]
     Indication: Product used for unknown indication
     Dosage: 1 DF, BID (20/5 MG/ML )
     Route: 047
  6. ALPHAGAN P [Concomitant]
     Active Substance: BRIMONIDINE TARTRATE
     Indication: Product used for unknown indication
     Dosage: 1 DF, BID ( 2 MG/ML )
     Route: 047
  7. CHOLECALCIFEROL [Concomitant]
     Active Substance: CHOLECALCIFEROL
     Indication: Product used for unknown indication
     Dosage: 5600 IU, Q4W
     Route: 048

REACTIONS (10)
  - Terminal state [Unknown]
  - Cardiomyopathy [Unknown]
  - Hypothyroidism [Unknown]
  - Left ventricular hypertrophy [Unknown]
  - Syncope [Unknown]
  - Bacterial diarrhoea [Unknown]
  - Presbyacusis [Unknown]
  - Hypoacusis [Unknown]
  - Abdominal pain [Unknown]
  - Defaecation disorder [Unknown]

NARRATIVE: CASE EVENT DATE: 20130101
